FAERS Safety Report 5700609-9 (Version None)
Quarter: 2008Q2

REPORT INFORMATION
  Report Type: 
  Country: None (occurrence: None)
  Receive Date: 20080410
  Receipt Date: 20080408
  Transmission Date: 20081010
  Serious: Yes (Death, Life-Threatening)
  Sender: FDA-Public Use
  Company Number: JP-ASTRAZENECA-2008AP02489

PATIENT
  Age: 70 Year
  Sex: Female

DRUGS (8)
  1. IRESSA [Suspect]
     Indication: LUNG NEOPLASM MALIGNANT
     Route: 048
     Dates: start: 20080312, end: 20080327
  2. LOXONIN [Concomitant]
     Dosage: UNKNOWN DOSE
     Route: 065
  3. MUCOSTA [Concomitant]
     Dosage: UNKNOWN DOSE
     Route: 065
  4. MAGMITT [Concomitant]
     Dosage: UNKNOWN DOSE
     Route: 065
  5. SERENACE [Concomitant]
     Dosage: UNKNOWN DOSE
     Route: 065
  6. FAMOTIDINE [Concomitant]
     Dosage: UNKNOWN DOSE
     Route: 065
  7. PRIMPERAN INJ [Concomitant]
     Dosage: UNKNOWN DOSE
     Route: 065
  8. MORPHINE HCL ELIXIR [Concomitant]
     Dosage: UNKNOWN DOSE
     Route: 065

REACTIONS (1)
  - HYPOXIA [None]
